FAERS Safety Report 7808329-1 (Version None)
Quarter: 2011Q4

REPORT INFORMATION
  Report Type: 
  Country: None (occurrence: None)
  Receive Date: 20111012
  Receipt Date: 20110411
  Transmission Date: 20120403
  Serious: Yes (Hospitalization, Other)
  Sender: FDA-Public Use
  Company Number: PL-UCBSA-014530

PATIENT
  Age: 26 Year
  Sex: Female
  Weight: 49.1 kg

DRUGS (9)
  1. CIPROFLOXACIN [Concomitant]
     Indication: CROHN'S DISEASE
     Route: 048
     Dates: start: 20110205, end: 20110225
  2. METRONIDAZOLE [Concomitant]
     Indication: CROHN'S DISEASE
     Route: 048
     Dates: start: 20110205, end: 20110225
  3. CERTOLIZUMAB PEGOL [Suspect]
     Dosage: AT WEEK 0, 2 AND 4
     Route: 058
     Dates: start: 20080714
  4. CORHYDRON [Concomitant]
     Route: 054
     Dates: start: 20110214, end: 20110225
  5. MESALAMINE [Concomitant]
     Indication: CROHN'S DISEASE
     Route: 054
     Dates: start: 20110214, end: 20110225
  6. PREDNISOLONE [Concomitant]
     Indication: CROHN'S DISEASE
     Route: 048
     Dates: start: 20110214, end: 20110225
  7. CERTOLIZUMAB PEGOL [Suspect]
     Route: 058
     Dates: end: 20110308
  8. CERTOLIZUMAB PEGOL [Suspect]
     Indication: CROHN'S DISEASE
     Dosage: STUDY C87085
     Route: 058
  9. CORHYDRON [Concomitant]
     Indication: CROHN'S DISEASE
     Route: 042
     Dates: start: 20110214, end: 20110225

REACTIONS (3)
  - CROHN'S DISEASE [None]
  - VAGINAL INFLAMMATION [None]
  - ANORECTAL DISORDER [None]
